FAERS Safety Report 8373083-4 (Version None)
Quarter: 2012Q2

REPORT INFORMATION
  Report Type: 
  Country: None (occurrence: None)
  Receive Date: 20120521
  Receipt Date: 20120507
  Transmission Date: 20120825
  Serious: Yes (Hospitalization, Other)
  Sender: FDA-Public Use
  Company Number: PHHO2010US03717

PATIENT
  Sex: Female
  Weight: 56.7 kg

DRUGS (4)
  1. ZORTRESS [Suspect]
     Indication: LIVER TRANSPLANT
     Dosage: 2 MG, BID
     Route: 048
     Dates: start: 20100324, end: 20110222
  2. ZORTRESS [Suspect]
     Dosage: 2 MG, BID
     Route: 048
     Dates: start: 20110401
  3. TACROLIMUS [Suspect]
     Dosage: 2 MG, BID
     Route: 048
  4. TACROLIMUS [Suspect]
     Indication: LIVER TRANSPLANT
     Dosage: 5 MG, BID
     Route: 048
     Dates: start: 20100223

REACTIONS (17)
  - LIVER TRANSPLANT REJECTION [None]
  - PANCYTOPENIA [None]
  - RENAL HAEMATOMA [None]
  - DILATATION INTRAHEPATIC DUCT ACQUIRED [None]
  - LUNG NEOPLASM [None]
  - PERIPORTAL OEDEMA [None]
  - BILIARY CIRRHOSIS PRIMARY [None]
  - TRAUMATIC RENAL INJURY [None]
  - COLITIS [None]
  - CHOLESTASIS [None]
  - DEVICE DISLOCATION [None]
  - ABDOMINAL PAIN [None]
  - BILIARY DILATATION [None]
  - ANASTOMOTIC COMPLICATION [None]
  - RENAL DISORDER [None]
  - BILIARY TRACT DISORDER [None]
  - CYTOMEGALOVIRUS VIRAEMIA [None]
